FAERS Safety Report 4694487-7 (Version None)
Quarter: 2005Q2

REPORT INFORMATION
  Report Type: 
  Country: None (occurrence: None)
  Receive Date: 20050614
  Receipt Date: 20050419
  Transmission Date: 20051028
  Serious: No
  Sender: FDA-Public Use
  Company Number: USA050495025

PATIENT
  Age: 60 Year
  Sex: Male

DRUGS (6)
  1. CIALIS [Suspect]
     Dosage: 20 MG
     Dates: start: 20040101
  2. ACECOL (TEMOCAPRIL HYDROCHLORIDE) [Concomitant]
  3. LOMOTIL [Concomitant]
  4. ZOVIRAX [Concomitant]
  5. CLARITIN [Concomitant]
  6. VIAGRA [Concomitant]

REACTIONS (3)
  - GASTROOESOPHAGEAL REFLUX DISEASE [None]
  - VISUAL ACUITY REDUCED [None]
  - VISUAL DISTURBANCE [None]
